FAERS Safety Report 13724697 (Version 2)
Quarter: 2017Q3

REPORT INFORMATION
  Report Type: Report from Study
  Country: US (occurrence: US)
  Receive Date: 20170706
  Receipt Date: 20170725
  Transmission Date: 20171127
  Serious: Yes (Hospitalization)
  Sender: FDA-Public Use
  Company Number: US-PFIZER INC-2017279404

PATIENT
  Age: 61 Year
  Sex: Female
  Weight: 72 kg

DRUGS (12)
  1. ZOFRAN [Concomitant]
     Active Substance: ONDANSETRON HYDROCHLORIDE
     Indication: NAUSEA
     Dosage: 4 MG, EVERY 12 HOURS AS NEEDED
     Route: 048
     Dates: start: 20170611
  2. LOVENOX [Concomitant]
     Active Substance: ENOXAPARIN SODIUM
     Dosage: 40 MG, EVERY EVENING
     Route: 058
  3. PRILOSEC [Concomitant]
     Active Substance: OMEPRAZOLE MAGNESIUM
     Dosage: 20 MG, DAILY
     Dates: start: 20170611
  4. ZOFRAN [Concomitant]
     Active Substance: ONDANSETRON HYDROCHLORIDE
     Indication: VOMITING
  5. MAGIC MOUTHWASH [Concomitant]
     Active Substance: DIPHENHYDRAMINE HYDROCHLORIDE\LIDOCAINE HYDROCHLORIDE\NYSTATIN
     Indication: ORAL PAIN
     Dosage: 1-2 MINUTES FOUR TIMES DAILY
     Dates: start: 20170111
  6. TALAZOPARIB [Suspect]
     Active Substance: TALAZOPARIB
     Indication: BREAST CANCER
     Dosage: 1 MG, DAILY
     Route: 048
     Dates: start: 20170119, end: 20170222
  7. TALAZOPARIB [Suspect]
     Active Substance: TALAZOPARIB
     Dosage: 0.75 MG, DAILY
     Route: 048
     Dates: start: 20170316, end: 20170412
  8. CYTOXAN [Suspect]
     Active Substance: CYCLOPHOSPHAMIDE
     Indication: BREAST CANCER
     Dosage: 1110 MG, Q 14 DAYS
     Route: 042
     Dates: start: 20170427
  9. IRINOTECAN HCL [Suspect]
     Active Substance: IRINOTECAN HYDROCHLORIDE
     Indication: BREAST CANCER
     Dosage: 48 MG, Q 14 DAYS
     Route: 042
     Dates: start: 20170119, end: 20170406
  10. DOXORUBICIN HCL [Suspect]
     Active Substance: DOXORUBICIN HYDROCHLORIDE
     Indication: BREAST CANCER
     Dosage: 110 MG, Q 14 DAYS
     Route: 042
     Dates: start: 20170427
  11. ZOVIRAX [Concomitant]
     Active Substance: ACYCLOVIR
     Indication: HERPES SIMPLEX
     Dosage: 400 MG, FIVE TIMES DAILY
     Dates: start: 20170611
  12. HEPARIN [Concomitant]
     Active Substance: HEPARIN SODIUM
     Dosage: HEPARIN IV FLUSH, 50 IU, AS NEEDED
     Route: 042

REACTIONS (1)
  - Febrile neutropenia [Recovered/Resolved]

NARRATIVE: CASE EVENT DATE: 20170611
